FAERS Safety Report 9023646 (Version 1)
Quarter: 2013Q1

REPORT INFORMATION
  Report Type: Report from Study
  Country: US (occurrence: US)
  Receive Date: 20130121
  Receipt Date: 20130121
  Transmission Date: 20140127
  Serious: Yes (Hospitalization, Other)
  Sender: FDA-Public Use
  Company Number: US-ABBOTT-13P-163-1034503-00

PATIENT
  Age: 45 None
  Sex: Female

DRUGS (10)
  1. HUMIRA [Suspect]
     Indication: PSORIASIS
     Dates: start: 20121121
  2. PROPRANOLOL [Concomitant]
     Indication: BLOOD PRESSURE
  3. NORVASC [Concomitant]
     Indication: BLOOD PRESSURE
  4. PROTONIX [Concomitant]
     Indication: GASTROOESOPHAGEAL REFLUX DISEASE
  5. EFFEXOR [Concomitant]
     Indication: DEPRESSION
  6. MAGNESIUM OXIDE [Concomitant]
     Indication: PRODUCT USED FOR UNKNOWN INDICATION
  7. VITAMIN B [Concomitant]
     Indication: PRODUCT USED FOR UNKNOWN INDICATION
  8. CALCIUM [Concomitant]
     Indication: PRODUCT USED FOR UNKNOWN INDICATION
  9. CLOBETASOL [Concomitant]
     Indication: PSORIASIS
  10. DIFLORASONE [Concomitant]
     Indication: PSORIASIS

REACTIONS (3)
  - Alcoholism [Unknown]
  - Flank pain [Unknown]
  - Pancreatitis acute [Unknown]
